FAERS Safety Report 17538578 (Version 1)
Quarter: 2020Q1

REPORT INFORMATION
  Report Type: Spontaneous
  Country: US (occurrence: US)
  Receive Date: 20200305
  Receipt Date: 20200305
  Transmission Date: 20200409
  Serious: Yes (Other)
  Sender: FDA-Public Use
  Company Number: None

PATIENT
  Age: 77 Year
  Sex: Female

DRUGS (1)
  1. REVLIMID [Suspect]
     Active Substance: LENALIDOMIDE
     Indication: PLASMA CELL MYELOMA
     Route: 048
     Dates: start: 20200213

REACTIONS (5)
  - Chest pain [None]
  - Acute myocardial infarction [None]
  - Dyspnoea [None]
  - Pleural effusion [None]
  - Therapy cessation [None]

NARRATIVE: CASE EVENT DATE: 20200217
